FAERS Safety Report 14896090 (Version 3)
Quarter: 2019Q2

REPORT INFORMATION
  Report Type: Report from Study
  Country: US (occurrence: US)
  Receive Date: 20180515
  Receipt Date: 20190614
  Transmission Date: 20190711
  Serious: Yes (Hospitalization, Other)
  Sender: FDA-Public Use
  Company Number: PHEH2018US017292

PATIENT
  Sex: Male

DRUGS (11)
  1. PLAVIX [Concomitant]
     Active Substance: CLOPIDOGREL BISULFATE
     Indication: PRODUCT USED FOR UNKNOWN INDICATION
     Dosage: 75 MG, UNK
     Route: 065
  2. SIMVASTATIN. [Concomitant]
     Active Substance: SIMVASTATIN
     Indication: PRODUCT USED FOR UNKNOWN INDICATION
     Route: 065
  3. METFORMIN [Concomitant]
     Active Substance: METFORMIN HYDROCHLORIDE
     Indication: DIABETES MELLITUS
     Dosage: 500 MG, BID
     Route: 065
  4. METOPROLOL. [Concomitant]
     Active Substance: METOPROLOL
     Indication: HYPERTENSION
     Dosage: 50 MG, QD
     Route: 065
  5. CALCIPOTRIENE. [Concomitant]
     Active Substance: CALCIPOTRIENE
     Indication: PSORIASIS
     Dosage: UNK
     Route: 061
  6. OMEPRAZOLE. [Concomitant]
     Active Substance: OMEPRAZOLE
     Indication: PRODUCT USED FOR UNKNOWN INDICATION
     Dosage: 20 MG, QD
     Route: 065
  7. COSENTYX [Suspect]
     Active Substance: SECUKINUMAB
     Indication: PSORIASIS
     Dosage: 300 MG, Q4W
     Route: 065
     Dates: start: 20170415
  8. GLIMEPIRIDE. [Concomitant]
     Active Substance: GLIMEPIRIDE
     Indication: DIABETES MELLITUS
     Dosage: 2 MG, QD
     Route: 065
  9. LOSARTAN AND HYDROCHLOROTHIAZIDE [Concomitant]
     Active Substance: HYDROCHLOROTHIAZIDE\LOSARTAN POTASSIUM
     Indication: HYPERTENSION
     Dosage: 50 MG, QD
     Route: 065
  10. ASPIRIN. [Concomitant]
     Active Substance: ASPIRIN
     Indication: PRODUCT USED FOR UNKNOWN INDICATION
     Dosage: 81 MG, QD
     Route: 065
  11. PAXIL [Concomitant]
     Active Substance: PAROXETINE HYDROCHLORIDE
     Indication: ANXIETY
     Dosage: 20 MG, QD
     Route: 065

REACTIONS (19)
  - Headache [Recovered/Resolved]
  - Acute kidney injury [Recovered/Resolved]
  - Pollakiuria [Recovered/Resolved]
  - Hyperglycaemia [Unknown]
  - Rhinorrhoea [Recovered/Resolved]
  - Dyspnoea [Recovered/Resolved]
  - Pyrexia [Recovered/Resolved]
  - Myalgia [Recovered/Resolved]
  - Sneezing [Recovered/Resolved]
  - Influenza [Recovered/Resolved]
  - Dyspnoea exertional [Unknown]
  - Electrocardiogram ST segment depression [Unknown]
  - Upper respiratory tract infection [Unknown]
  - Retching [Recovered/Resolved]
  - Haemolysis [Unknown]
  - Hyperkalaemia [Recovered/Resolved]
  - Cough [Recovered/Resolved]
  - Oropharyngeal pain [Recovered/Resolved]
  - Sinus tachycardia [Recovering/Resolving]

NARRATIVE: CASE EVENT DATE: 20180127
